FAERS Safety Report 4917078-9 (Version None)
Quarter: 2006Q1

REPORT INFORMATION
  Report Type: 
  Country: None (occurrence: None)
  Receive Date: 20060214
  Receipt Date: 20060130
  Transmission Date: 20060701
  Serious: Yes (Life-Threatening)
  Sender: FDA-Public Use
  Company Number: 051229-0001177

PATIENT
  Age: 8 Day
  Sex: Male
  Weight: 1.84 kg

DRUGS (5)
  1. INDOCIN [Suspect]
     Indication: PATENT DUCTUS ARTERIOSUS
     Dosage: 0.2 MG/KG;QD;INJ
     Dates: start: 20041203, end: 20041205
  2. INOVAN [Concomitant]
  3. LASIX [Concomitant]
  4. AMPICILLIN SODIUM [Concomitant]
  5. CEFOTAXIME [Concomitant]

REACTIONS (11)
  - APNOEIC ATTACK [None]
  - ASCITES [None]
  - CARDIOVASCULAR DISORDER [None]
  - DUODENAL PERFORATION [None]
  - GASTROINTESTINAL OEDEMA [None]
  - NECROTISING COLITIS [None]
  - NEONATAL DISORDER [None]
  - PERITONITIS [None]
  - RESPIRATORY ACIDOSIS [None]
  - STRESS ULCER [None]
  - UPPER GASTROINTESTINAL HAEMORRHAGE [None]
